FAERS Safety Report 10288154 (Version 1)
Quarter: 2014Q3

REPORT INFORMATION
  Report Type: Spontaneous
  Country: US (occurrence: US)
  Receive Date: 20140709
  Receipt Date: 20140709
  Transmission Date: 20150326
  Serious: No
  Sender: FDA-Public Use
  Company Number: US-ENDO PHARMACEUTICALS INC.-NYST20140001

PATIENT
  Sex: Female

DRUGS (1)
  1. NYSTATIN SUSPENSION [Suspect]
     Active Substance: NYSTATIN
     Indication: PRODUCT USED FOR UNKNOWN INDICATION
     Dosage: 4,000,000 UNITS/ML
     Route: 048

REACTIONS (1)
  - Facial pain [Not Recovered/Not Resolved]
